FAERS Safety Report 15950827 (Version 1)
Quarter: 2019Q1

REPORT INFORMATION
  Report Type: Spontaneous
  Country: US (occurrence: US)
  Receive Date: 20190212
  Receipt Date: 20190212
  Transmission Date: 20190417
  Serious: No
  Sender: FDA-Public Use
  Company Number: US-CELGENEUS-USA-20190202349

PATIENT
  Age: 60 Year
  Sex: Female

DRUGS (3)
  1. ENASIDENIB [Suspect]
     Active Substance: ENASIDENIB
     Indication: BREAST CANCER
     Dosage: 100 MILLIGRAM
     Route: 048
     Dates: start: 20180810
  2. ENASIDENIB [Suspect]
     Active Substance: ENASIDENIB
     Indication: CHRONIC MYELOID LEUKAEMIA
  3. AMBIEN [Concomitant]
     Active Substance: ZOLPIDEM TARTRATE
     Indication: PRODUCT USED FOR UNKNOWN INDICATION
     Route: 065

REACTIONS (4)
  - Pain in extremity [Not Recovered/Not Resolved]
  - Hypoaesthesia [Not Recovered/Not Resolved]
  - Peripheral swelling [Not Recovered/Not Resolved]
  - Paraesthesia [Not Recovered/Not Resolved]

NARRATIVE: CASE EVENT DATE: 201902
